FAERS Safety Report 7274803-2 (Version None)
Quarter: 2011Q1

REPORT INFORMATION
  Report Type: 
  Country: None (occurrence: None)
  Receive Date: 20110204
  Receipt Date: 20110110
  Transmission Date: 20110831
  Serious: No
  Sender: FDA-Public Use
  Company Number: US-B.I. PHARMACEUTICALS,INC./RIDGEFIELD-2011-BP-01707BP

PATIENT
  Sex: Male

DRUGS (1)
  1. MIRAPEX [Suspect]
     Dates: start: 19970701

REACTIONS (6)
  - OBSESSIVE-COMPULSIVE DISORDER [None]
  - HYPERPHAGIA [None]
  - COMPULSIVE SHOPPING [None]
  - EMOTIONAL DISTRESS [None]
  - PATHOLOGICAL GAMBLING [None]
  - PAIN [None]
